FAERS Safety Report 8247236-X (Version None)
Quarter: 2012Q1

REPORT INFORMATION
  Report Type: 
  Country: None (occurrence: None)
  Receive Date: 20120329
  Receipt Date: 20120329
  Transmission Date: 20120608
  Serious: No
  Sender: FDA-Public Use
  Company Number: None

PATIENT
  Age: 31 Year
  Sex: Male

DRUGS (2)
  1. AZITHROMYCIN [Suspect]
     Dates: start: 20100628, end: 20100702
  2. CEFAZOLIN [Suspect]
     Dates: start: 20100622, end: 20100622

REACTIONS (3)
  - JAUNDICE [None]
  - BLOOD BILIRUBIN INCREASED [None]
  - CHOLESTASIS [None]
